FAERS Safety Report 8491317-2 (Version None)
Quarter: 2012Q3

REPORT INFORMATION
  Report Type: 
  Country: None (occurrence: None)
  Receive Date: 20120706
  Receipt Date: 20120627
  Transmission Date: 20120928
  Serious: Yes (Other)
  Sender: FDA-Public Use
  Company Number: PHHY2010JP77704

PATIENT
  Sex: Female

DRUGS (14)
  1. NEUROTROPIN [Concomitant]
     Dosage: 16 IU, UNK
     Route: 048
     Dates: start: 20091107
  2. TASIGNA [Suspect]
     Dosage: 800 MG, DAILY
     Route: 048
     Dates: start: 20091205, end: 20091211
  3. TASIGNA [Suspect]
     Dosage: 400 MG, DAILY
     Route: 048
     Dates: start: 20100109
  4. ZOLPIDEM [Concomitant]
     Dosage: 5 MG, UNK
     Route: 048
     Dates: start: 20080906, end: 20120402
  5. LANSOPRAZOLE [Concomitant]
     Dosage: 30 MG, UNK
     Route: 048
  6. MAGLAX [Concomitant]
     Dosage: 1980 MG, UNK
     Route: 048
     Dates: start: 20120108
  7. LOXONIN [Concomitant]
     Dates: start: 20100909
  8. SUCRALFATE [Suspect]
     Indication: PROPHYLAXIS
     Dosage: 3 G, UNK
     Route: 048
     Dates: start: 20100108
  9. LANSOPRAZOLE [Concomitant]
     Indication: PROPHYLAXIS
     Dosage: 15 MG, UNK
     Route: 048
     Dates: start: 20090605
  10. SILECE [Concomitant]
     Dosage: 1 MG, UNK
     Route: 048
     Dates: start: 20120402
  11. MUCOSTA [Concomitant]
     Indication: PROPHYLAXIS
     Dosage: 300 MG, UNK
     Route: 048
     Dates: start: 20090605
  12. FAMOTIDINE [Concomitant]
     Dosage: 20 MG, UNK
     Route: 048
     Dates: start: 20100529, end: 20100610
  13. TASIGNA [Suspect]
     Indication: CHRONIC MYELOID LEUKAEMIA
     Dosage: 800 MG, DAILY
     Route: 048
     Dates: start: 20091107, end: 20091116
  14. PREDNISOLONE SODIUM SUCCINATE INJ [Suspect]
     Dosage: 10 MG, DAILY
     Route: 048

REACTIONS (1)
  - GAMMA-GLUTAMYLTRANSFERASE INCREASED [None]
